FAERS Safety Report 6265490-0 (Version None)
Quarter: 2009Q3

REPORT INFORMATION
  Report Type: 
  Country: None (occurrence: None)
  Receive Date: 20090713
  Receipt Date: 20090708
  Transmission Date: 20100115
  Serious: Yes (Death)
  Sender: FDA-Public Use
  Company Number: PHHY2009CN28048

PATIENT
  Age: 61 Year
  Sex: Female

DRUGS (2)
  1. CYCLOSPORINE [Suspect]
     Indication: RENAL TRANSPLANT
     Dosage: 5 MG/KG DAILY
     Dates: start: 20000101
  2. PREDNISONE [Suspect]
     Indication: RENAL TRANSPLANT

REACTIONS (4)
  - METASTASIS [None]
  - NEPHROURETERECTOMY [None]
  - TRANSITIONAL CELL CARCINOMA [None]
  - TRANSURETHRAL BLADDER RESECTION [None]
